FAERS Safety Report 13309743 (Version 1)
Quarter: 2017Q1

REPORT INFORMATION
  Report Type: Spontaneous
  Country: US (occurrence: US)
  Receive Date: 20170309
  Receipt Date: 20170309
  Transmission Date: 20170428
  Serious: Yes (Disabling)
  Sender: FDA-Public Use
  Company Number: None

PATIENT
  Age: 45 Year
  Sex: Female
  Weight: 105 kg

DRUGS (2)
  1. ARIPRIPRAZOLE [Suspect]
     Active Substance: ARIPIPRAZOLE
     Indication: SCHIZOPHRENIA
     Route: 048
     Dates: start: 20170207, end: 20170214
  2. FLUOXETINE [Concomitant]
     Active Substance: FLUOXETINE HYDROCHLORIDE

REACTIONS (9)
  - Feeling abnormal [None]
  - Vomiting [None]
  - Middle insomnia [None]
  - Sleep disorder [None]
  - Muscle twitching [None]
  - Dyskinesia [None]
  - Agitation [None]
  - Nervousness [None]
  - Somnolence [None]

NARRATIVE: CASE EVENT DATE: 20170209
